FAERS Safety Report 9518485 (Version 1)
Quarter: 2020Q3

REPORT INFORMATION
  Report Type: Spontaneous
  Country: JO (occurrence: JO)
  Receive Date: 20130912
  Receipt Date: 20130912
  Transmission Date: 20201104
  Serious: Yes (Other)
  Sender: FDA-Public Use
  Company Number: JO-ROCHE-1272006

PATIENT
  Age: 65 Year
  Sex: Female

DRUGS (1)
  1. IBANDRONIC ACID. [Suspect]
     Active Substance: IBANDRONIC ACID
     Indication: PRODUCT USED FOR UNKNOWN INDICATION
     Dosage: ONCE MONTHLY
     Route: 065
     Dates: start: 201305

REACTIONS (2)
  - Urinary tract infection [Unknown]
  - Cervical discharge [Unknown]
